FAERS Safety Report 20574767 (Version 3)
Quarter: 2022Q3

REPORT INFORMATION
  Report Type: Report from Study
  Country: US (occurrence: US)
  Receive Date: 20220309
  Receipt Date: 20220816
  Transmission Date: 20221027
  Serious: Yes (Other)
  Sender: FDA-Public Use
  Company Number: US-TAKEDA-US202005064

PATIENT
  Age: 16 Year
  Sex: Female

DRUGS (1)
  1. VON WILLEBRAND FACTOR HUMAN [Suspect]
     Active Substance: VON WILLEBRAND FACTOR HUMAN
     Indication: Product used for unknown indication
     Dosage: UNK
     Route: 065

REACTIONS (7)
  - Surgery [Unknown]
  - Panic attack [Unknown]
  - Fall [Unknown]
  - Pyrexia [Unknown]
  - Inappropriate schedule of product administration [Unknown]
  - Product availability issue [Unknown]
  - Appendicectomy [Recovered/Resolved]

NARRATIVE: CASE EVENT DATE: 20220306
